FAERS Safety Report 7369944-5 (Version None)
Quarter: 2011Q1

REPORT INFORMATION
  Report Type: 
  Country: None (occurrence: None)
  Receive Date: 20110323
  Receipt Date: 20110314
  Transmission Date: 20110831
  Serious: Yes (Other)
  Sender: FDA-Public Use
  Company Number: GB-JNJFOC-20110308320

PATIENT
  Sex: Male

DRUGS (2)
  1. LISTERINE COOLMINT [Suspect]
     Indication: DENTAL DISORDER PROPHYLAXIS
     Route: 048
  2. LISTERINE COOLMINT [Suspect]
     Route: 048

REACTIONS (3)
  - LOOSE TOOTH [None]
  - DEVICE FAILURE [None]
  - DISCOMFORT [None]
